FAERS Safety Report 16264371 (Version 1)
Quarter: 2019Q2

REPORT INFORMATION
  Report Type: Spontaneous
  Country: SE (occurrence: SE)
  Receive Date: 20190502
  Receipt Date: 20190502
  Transmission Date: 20190711
  Serious: Yes (Hospitalization)
  Sender: FDA-Public Use
  Company Number: SE-PFIZER INC-2019180418

PATIENT
  Sex: Male

DRUGS (5)
  1. GABAPENTIN. [Concomitant]
     Active Substance: GABAPENTIN
     Dosage: UNK
  2. LOPERAMIDE [Suspect]
     Active Substance: LOPERAMIDE
     Dosage: 300 MG, SINGLE
     Route: 048
     Dates: start: 20160227, end: 20160227
  3. CIPRALEX [Concomitant]
     Active Substance: ESCITALOPRAM OXALATE
     Dosage: UNK
  4. NOZINAN [LEVOMEPROMAZINE MALEATE] [Suspect]
     Active Substance: LEVOMEPROMAZINE MALEATE
     Dosage: UNK (HIS NORMAL DOSE + TWO NOZINAN THAT HE HAS CRUSHED AND SMOKED)
     Route: 055
     Dates: start: 20160226, end: 20160226
  5. LYRICA [Suspect]
     Active Substance: PREGABALIN
     Dosage: 100 MG, SINGLE
     Route: 048
     Dates: start: 20160228, end: 20160228

REACTIONS (6)
  - Miosis [Unknown]
  - Intentional self-injury [Unknown]
  - Intentional overdose [Unknown]
  - Restlessness [Unknown]
  - Anxiety [Unknown]
  - Hallucination [Unknown]

NARRATIVE: CASE EVENT DATE: 20160227
